FAERS Safety Report 5885063-9 (Version None)
Quarter: 2008Q3

REPORT INFORMATION
  Report Type: 
  Country: None (occurrence: None)
  Receive Date: 20080915
  Receipt Date: 20080915
  Transmission Date: 20090109
  Serious: Yes (Hospitalization)
  Sender: FDA-Public Use
  Company Number: None

PATIENT
  Age: 65 Year
  Sex: Male
  Weight: 67 kg

DRUGS (1)
  1. SUNITINIB [Suspect]
     Indication: RENAL CELL CARCINOMA
     Dosage: 50 MG EVERY DAY PO
     Route: 048
     Dates: start: 20080416, end: 20080824

REACTIONS (9)
  - ABDOMINAL PAIN [None]
  - CONFUSIONAL STATE [None]
  - DIARRHOEA [None]
  - DIARRHOEA HAEMORRHAGIC [None]
  - FATIGUE [None]
  - RASH [None]
  - SKIN DISCOLOURATION [None]
  - THROMBOCYTOPENIA [None]
  - WEIGHT DECREASED [None]
